FAERS Safety Report 5887578-6 (Version None)
Quarter: 2008Q3

REPORT INFORMATION
  Report Type: 
  Country: None (occurrence: None)
  Receive Date: 20080918
  Receipt Date: 20080911
  Transmission Date: 20090109
  Serious: Yes (Hospitalization, Other)
  Sender: FDA-Public Use
  Company Number: PHHY2008JP18922

PATIENT
  Sex: Male
  Weight: 98 kg

DRUGS (3)
  1. PARLODEL [Suspect]
     Indication: INVESTIGATION
     Dosage: 2.5 MG/DAY
     Route: 048
     Dates: start: 20080418, end: 20080418
  2. PARLODEL [Suspect]
     Dosage: 2.5 MG/DAY
     Route: 048
     Dates: start: 20080820, end: 20080820
  3. SANDOSTATIN [Concomitant]
     Indication: INVESTIGATION
     Dosage: 100 UG/DAY
     Route: 058
     Dates: start: 20080822, end: 20080822

REACTIONS (9)
  - BLOOD PRESSURE DECREASED [None]
  - BRADYCARDIA [None]
  - COLD SWEAT [None]
  - COORDINATION ABNORMAL [None]
  - FALL [None]
  - LOSS OF CONSCIOUSNESS [None]
  - NAUSEA [None]
  - PITUITARY TUMOUR REMOVAL [None]
  - VENTRICULAR EXTRASYSTOLES [None]
